FAERS Safety Report 12096371 (Version 1)
Quarter: 2016Q1

REPORT INFORMATION
  Report Type: Spontaneous
  Country: US (occurrence: US)
  Receive Date: 20160220
  Receipt Date: 20160220
  Transmission Date: 20160526
  Serious: No
  Sender: FDA-Public Use
  Company Number: US-ASTRAZENECA-2016SE14161

PATIENT
  Sex: Male
  Weight: 118.9 kg

DRUGS (1)
  1. TUDORZA PRESSAIR [Suspect]
     Active Substance: ACLIDINIUM BROMIDE
     Indication: CHRONIC OBSTRUCTIVE PULMONARY DISEASE
     Dosage: 400 MCG 60 METERED DOSE INHALER ONE INHALATION ONCE DAILY
     Route: 055
     Dates: start: 20160203

REACTIONS (4)
  - Drug dose omission [Not Recovered/Not Resolved]
  - Sinus disorder [Unknown]
  - Device malfunction [Unknown]
  - Dry mouth [Unknown]
